FAERS Safety Report 7400130-6 (Version None)
Quarter: 2011Q2

REPORT INFORMATION
  Report Type: 
  Country: None (occurrence: None)
  Receive Date: 20110407
  Receipt Date: 20110404
  Transmission Date: 20111010
  Serious: Yes (Hospitalization)
  Sender: FDA-Public Use
  Company Number: CA-ABBOTT-11P-028-0716751-00

PATIENT
  Sex: Female
  Weight: 58.112 kg

DRUGS (3)
  1. KALETRA [Suspect]
     Indication: HIV INFECTION
  2. KALETRA [Suspect]
     Indication: ANTIRETROVIRAL THERAPY
     Route: 048
     Dates: start: 20110228
  3. TRUVADA [Concomitant]
     Indication: HIV INFECTION
     Dosage: 200MG/ 300MG DAILY
     Route: 048
     Dates: start: 20110228

REACTIONS (2)
  - KIDNEY INFECTION [None]
  - DYSPEPSIA [None]
